FAERS Safety Report 17677201 (Version 2)
Quarter: 2021Q3

REPORT INFORMATION
  Report Type: Spontaneous
  Country: US (occurrence: US)
  Receive Date: 20200416
  Receipt Date: 20210806
  Transmission Date: 20211014
  Serious: Yes (Death, Other)
  Sender: FDA-Public Use
  Company Number: US-NAPPMUNDI-USA-2020-0151760

PATIENT
  Sex: Female

DRUGS (1)
  1. OXYCONTIN [Suspect]
     Active Substance: OXYCODONE HYDROCHLORIDE
     Indication: PRODUCT USED FOR UNKNOWN INDICATION
     Dosage: UNKNOWN
     Route: 048
     Dates: start: 200409

REACTIONS (5)
  - Drug dependence [Unknown]
  - Quality of life decreased [Unknown]
  - Death [Fatal]
  - Emotional distress [Unknown]
  - Surgery [Unknown]

NARRATIVE: CASE EVENT DATE: 201210
